FAERS Safety Report 15372144 (Version 1)
Quarter: 2018Q4

REPORT INFORMATION
  Report Type: Spontaneous
  Country: NO (occurrence: NO)
  Receive Date: 20180911
  Receipt Date: 20180911
  Transmission Date: 20190204
  Serious: Yes (Life-Threatening)
  Sender: FDA-Public Use
  Company Number: NO-ALLERGAN-1844326US

PATIENT
  Age: 56 Year
  Sex: Female

DRUGS (15)
  1. TRUXAL [Suspect]
     Active Substance: CHLORPROTHIXENE
     Indication: MENTAL DISORDER
     Route: 048
  2. ABILIFY [Suspect]
     Active Substance: ARIPIPRAZOLE
     Indication: MENTAL DISORDER
     Route: 048
  3. STEMETIL [Suspect]
     Active Substance: PROCHLORPERAZINE MALEATE
     Indication: MENTAL DISORDER
     Route: 048
  4. ESCITALOPRAM OXALATE - BP [Suspect]
     Active Substance: ESCITALOPRAM OXALATE
     Indication: MENTAL DISORDER
     Dosage: UNK
     Route: 048
  5. TRILAFON [Suspect]
     Active Substance: PERPHENAZINE
     Indication: MENTAL DISORDER
     Route: 048
  6. VALLERGAN [Suspect]
     Active Substance: TRIMEPRAZINE
     Indication: MENTAL DISORDER
     Route: 048
  7. CYMBALTA [Suspect]
     Active Substance: DULOXETINE HYDROCHLORIDE
     Indication: MENTAL DISORDER
     Route: 048
  8. REMERON [Suspect]
     Active Substance: MIRTAZAPINE
     Indication: MENTAL DISORDER
     Route: 048
  9. NOZINAN [Suspect]
     Active Substance: LEVOMEPROMAZINE
     Indication: MENTAL DISORDER
     Route: 048
  10. FLUANXOL TABLETTER (FLUPENTIXOL DIHYDROCHLORIDE) [Suspect]
     Active Substance: FLUPENTIXOL DIHYDROCHLORIDE
     Indication: MENTAL DISORDER
     Route: 048
  11. EFEXOR [Suspect]
     Active Substance: VENLAFAXINE HYDROCHLORIDE
     Indication: MENTAL DISORDER
     Dosage: EFEXOR DEPOT
     Route: 048
  12. IBUX [Suspect]
     Active Substance: IBUPROFEN
     Indication: MENTAL DISORDER
     Route: 048
  13. ZYPREXA [Suspect]
     Active Substance: OLANZAPINE
     Indication: MENTAL DISORDER
     Route: 048
  14. FLUOXETINE [Suspect]
     Active Substance: FLUOXETINE HYDROCHLORIDE
     Indication: MENTAL DISORDER
     Route: 048
  15. SOBRIL [Suspect]
     Active Substance: OXAZEPAM
     Indication: MENTAL DISORDER
     Dosage: UNK
     Route: 048

REACTIONS (10)
  - Neuroleptic malignant syndrome [Recovered/Resolved]
  - Nausea [Recovered/Resolved]
  - Vomiting [Recovered/Resolved]
  - Decreased appetite [Recovered/Resolved with Sequelae]
  - Muscle rigidity [Recovered/Resolved]
  - Pyrexia [Recovered/Resolved]
  - Haemorrhage [Recovered/Resolved]
  - Hyperhidrosis [Recovered/Resolved]
  - Dehydration [Recovered/Resolved]
  - Tremor [Recovered/Resolved]
